FAERS Safety Report 16946190 (Version 1)
Quarter: 2019Q4

REPORT INFORMATION
  Report Type: Spontaneous
  Country: US (occurrence: US)
  Receive Date: 20190830
  Receipt Date: 20190830
  Transmission Date: 20200122
  Serious: Yes (Other)
  Sender: FDA-Public Use
  Company Number: None

PATIENT
  Age: 58 Year
  Sex: Female

DRUGS (20)
  1. AMBRISENTAN [Suspect]
     Active Substance: AMBRISENTAN
     Indication: PULMONARY EMBOLISM
     Route: 048
     Dates: start: 201508
  2. SPIRONOLACTONE. [Concomitant]
     Active Substance: SPIRONOLACTONE
  3. ADVAIR DISKUS [Concomitant]
     Active Substance: FLUTICASONE PROPIONATE\SALMETEROL XINAFOATE
  4. NYSTATIN ORAL SUSP [Concomitant]
  5. NORCO [Concomitant]
     Active Substance: ACETAMINOPHEN\HYDROCODONE BITARTRATE
  6. PRED FORTE OPHT SUSP [Concomitant]
  7. IPRATROPIUM INHL SOLN [Concomitant]
  8. SILDENAFIL. [Concomitant]
     Active Substance: SILDENAFIL
  9. DILTIAZEM. [Concomitant]
     Active Substance: DILTIAZEM
  10. WARFARIN [Concomitant]
     Active Substance: WARFARIN
  11. LACTULOSE ORAL SOLN [Concomitant]
  12. CYCLOGYL OPHT DROP [Concomitant]
  13. ALBUTEROL BEB SOLN [Concomitant]
  14. SPIRIVA [Concomitant]
     Active Substance: TIOTROPIUM BROMIDE MONOHYDRATE
  15. GUAIFENESIN AC [Concomitant]
     Active Substance: CODEINE PHOSPHATE\GUAIFENESIN
  16. NARCAN [Concomitant]
     Active Substance: NALOXONE HYDROCHLORIDE
  17. ALBUTEROL HFA [Concomitant]
     Active Substance: ALBUTEROL SULFATE
  18. DIAZEPAM. [Concomitant]
     Active Substance: DIAZEPAM
  19. FLONASE [Concomitant]
     Active Substance: FLUTICASONE PROPIONATE
  20. FUROSEMIDE. [Concomitant]
     Active Substance: FUROSEMIDE

REACTIONS (4)
  - Headache [None]
  - Product substitution issue [None]
  - Wheezing [None]
  - Dyspnoea [None]

NARRATIVE: CASE EVENT DATE: 20190830
